FAERS Safety Report 6593150-5 (Version None)
Quarter: 2010Q1

REPORT INFORMATION
  Report Type: 
  Country: None (occurrence: None)
  Receive Date: 20100222
  Receipt Date: 20100209
  Transmission Date: 20100710
  Serious: Yes (Hospitalization)
  Sender: FDA-Public Use
  Company Number: PHHY2010AU01318

PATIENT
  Sex: Female

DRUGS (12)
  1. ACLASTA [Suspect]
     Dosage: 5 MG/ 100 ML
     Route: 042
     Dates: start: 20091028
  2. DIURETICS [Concomitant]
  3. NSAID'S [Concomitant]
  4. FRUSEMIDE [Concomitant]
     Dosage: 40 MG, QD
  5. OVESTIN [Concomitant]
     Dosage: 0.5 MG, ONCE TO TWICE WEEKLY
  6. FLUVOXAMINE MALEATE [Concomitant]
     Dosage: 100 MG, 1.5 TABLET AT NIGHT
  7. VYTORIN [Concomitant]
  8. OXYNORM [Concomitant]
     Dosage: 10 MG, 1-2 CAPSULES FOUR TIMES DAILY
  9. MS CONTIN [Concomitant]
     Dosage: 60 MG, BID
  10. ASPIRIN [Concomitant]
     Dosage: 100 MG, 1 TABLET QD
  11. NEXIUM [Concomitant]
     Dosage: 20 MG, 1 TABLET QD
  12. ACETAMINOPHEN W/ CODEINE [Concomitant]
     Dosage: 1-2 TABLETS PER DAY IF REQUIRED

REACTIONS (9)
  - CONFUSIONAL STATE [None]
  - HAEMOGLOBIN DECREASED [None]
  - LETHARGY [None]
  - RENAL FAILURE ACUTE [None]
  - RENAL INJURY [None]
  - RENAL TUBULAR NECROSIS [None]
  - SOMNOLENCE [None]
  - TUBULOINTERSTITIAL NEPHRITIS [None]
  - URINARY TRACT INFECTION BACTERIAL [None]
